FAERS Safety Report 11110425 (Version 3)
Quarter: 2015Q3

REPORT INFORMATION
  Report Type: Report from Study
  Country: US (occurrence: US)
  Receive Date: 20150513
  Receipt Date: 20150928
  Transmission Date: 20151125
  Serious: Yes (Other)
  Sender: FDA-Public Use
  Company Number: US-AMGEN-USASL2015045591

PATIENT
  Age: 51 Year
  Sex: Female

DRUGS (2)
  1. PLAVIX [Concomitant]
     Active Substance: CLOPIDOGREL BISULFATE
     Dosage: UNK
  2. ENBREL [Suspect]
     Active Substance: ETANERCEPT
     Indication: RHEUMATOID ARTHRITIS
     Dosage: 50 MG, QWK
     Route: 065
     Dates: start: 20140822

REACTIONS (9)
  - Pain [Unknown]
  - Drug effect decreased [Unknown]
  - Epicondylitis [Unknown]
  - Gait disturbance [Unknown]
  - Inflammation [Unknown]
  - Cervical dysplasia [Unknown]
  - Hepatitis C [Not Recovered/Not Resolved]
  - Musculoskeletal disorder [Unknown]
  - Musculoskeletal pain [Not Recovered/Not Resolved]

NARRATIVE: CASE EVENT DATE: 2015
